FAERS Safety Report 6411068-5 (Version None)
Quarter: 2009Q4

REPORT INFORMATION
  Report Type: 
  Country: None (occurrence: None)
  Receive Date: 20091022
  Receipt Date: 20091019
  Transmission Date: 20100525
  Serious: Yes (Hospitalization)
  Sender: FDA-Public Use
  Company Number: US-GILEAD-2009-0024907

PATIENT
  Sex: Female
  Weight: 63.56 kg

DRUGS (17)
  1. LETAIRIS [Suspect]
     Indication: PULMONARY ARTERIAL HYPERTENSION
     Route: 048
     Dates: start: 20080703
  2. VENTAVIS [Concomitant]
  3. REVATIO [Concomitant]
  4. LEVAQUIN [Concomitant]
  5. AUGMENTIN [Concomitant]
  6. SENNA [Concomitant]
  7. FENTANYL-100 [Concomitant]
  8. PREDNISONE [Concomitant]
  9. XANAX [Concomitant]
  10. MULTI-VITAMINS [Concomitant]
  11. OXYCODONE [Concomitant]
  12. FERROUS SULFATE TAB [Concomitant]
  13. NEXIUM [Concomitant]
  14. METOCLOPRAMIDE [Concomitant]
  15. CARTIA XT [Concomitant]
  16. SPIRONOLACTONE [Concomitant]
  17. FOLIC ACID [Concomitant]

REACTIONS (1)
  - PNEUMONIA [None]
